FAERS Safety Report 10475252 (Version 1)
Quarter: 2014Q3

REPORT INFORMATION
  Report Type: Spontaneous
  Country: US (occurrence: None)
  Receive Date: 20140924
  Receipt Date: 20140924
  Transmission Date: 20150326
  Serious: Yes (Hospitalization)
  Sender: FDA-Public Use
  Company Number: None

PATIENT
  Age: 83 Year
  Sex: Male
  Weight: 65 kg

DRUGS (16)
  1. ASA [Suspect]
     Active Substance: ASPIRIN
     Indication: HIP SURGERY
     Dosage: RECENT
     Route: 048
  2. MIRALAX [Concomitant]
     Active Substance: POLYETHYLENE GLYCOL 3350
  3. FOSAMAX [Concomitant]
     Active Substance: ALENDRONATE SODIUM
  4. FLOMAX [Concomitant]
     Active Substance: TAMSULOSIN HYDROCHLORIDE
  5. PEPTO-BISMOL [Concomitant]
     Active Substance: BISMUTH SUBSALICYLATE\CALCIUM CARBONATE
  6. FLUDROCORTISONE [Concomitant]
     Active Substance: FLUDROCORTISONE
  7. LANTUS [Concomitant]
     Active Substance: INSULIN GLARGINE
  8. CITRACAL [Concomitant]
     Active Substance: CALCIUM CITRATE
  9. MOM [Concomitant]
     Active Substance: MAGNESIUM HYDROXIDE
  10. SINEMET [Concomitant]
     Active Substance: CARBIDOPA\LEVODOPA
  11. APAP [Concomitant]
     Active Substance: ACETAMINOPHEN
  12. HYDROCORTISONE. [Concomitant]
     Active Substance: HYDROCORTISONE
  13. MELATONIN [Concomitant]
     Active Substance: MELATONIN
  14. SERTRALINE [Concomitant]
     Active Substance: SERTRALINE HYDROCHLORIDE
  15. PRAVASTATIN [Concomitant]
     Active Substance: PRAVASTATIN\PRAVASTATIN SODIUM
  16. EXELON [Concomitant]
     Active Substance: RIVASTIGMINE TARTRATE

REACTIONS (6)
  - Duodenal ulcer [None]
  - Upper gastrointestinal haemorrhage [None]
  - Haemorrhagic anaemia [None]
  - Encephalopathy [None]
  - Hypotension [None]
  - Hypoperfusion [None]

NARRATIVE: CASE EVENT DATE: 20140303
